FAERS Safety Report 4483851-7 (Version None)
Quarter: 2004Q4

REPORT INFORMATION
  Report Type: 
  Country: None (occurrence: None)
  Receive Date: 20041022
  Receipt Date: 20041022
  Transmission Date: 20050328
  Serious: Yes (Life-Threatening, Hospitalization)
  Sender: FDA-Public Use
  Company Number: None

PATIENT
  Age: 70 Year
  Sex: Female
  Weight: 99.7913 kg

DRUGS (3)
  1. LOVENOX [Suspect]
     Indication: MYOCARDIAL INFARCTION
     Dosage: DOSE, 1 DOSE ONLY
     Dates: start: 20030720
  2. MORPHINE [Concomitant]
  3. NAPROSYN [Concomitant]

REACTIONS (8)
  - DECUBITUS ULCER [None]
  - HAEMORRHAGE [None]
  - MEDICATION ERROR [None]
  - PARALYSIS [None]
  - PLEURAL EFFUSION [None]
  - PNEUMONIA [None]
  - STAPHYLOCOCCAL INFECTION [None]
  - THROMBOSIS [None]
